FAERS Safety Report 9175947 (Version 1)
Quarter: 2013Q1

REPORT INFORMATION
  Report Type: Spontaneous
  Country: US (occurrence: US)
  Receive Date: 20130320
  Receipt Date: 20130320
  Transmission Date: 20140127
  Serious: Yes (Other)
  Sender: FDA-Public Use
  Company Number: US-ELI_LILLY_AND_COMPANY-US201303003806

PATIENT
  Age: 50 Year
  Sex: Female

DRUGS (2)
  1. HUMALOG 25% LISPRO, 75% NPL [Suspect]
     Indication: DIABETES MELLITUS
     Dosage: 18 U, EACH EVENING
  2. HUMALOG 25% LISPRO, 75% NPL [Suspect]
     Dosage: 18 U, EACH EVENING

REACTIONS (4)
  - Hypoglycaemic unconsciousness [Unknown]
  - Hyperglycaemia [Unknown]
  - Blood pressure increased [Unknown]
  - Drug dose omission [Unknown]
